FAERS Safety Report 9747827 (Version 1)
Quarter: 2013Q4

REPORT INFORMATION
  Report Type: Spontaneous
  Country: US (occurrence: US)
  Receive Date: 20131212
  Receipt Date: 20131212
  Transmission Date: 20140711
  Serious: No
  Sender: FDA-Public Use
  Company Number: US-TEVA-386532USA

PATIENT
  Age: 25 Year
  Sex: Female
  Weight: 80.81 kg

DRUGS (2)
  1. PARAGARD 380A [Suspect]
     Indication: CONTRACEPTION
     Route: 015
     Dates: start: 20130115
  2. GENERESS 4/4/4 [Concomitant]
     Indication: PROPHYLAXIS

REACTIONS (7)
  - Ovarian cyst [Not Recovered/Not Resolved]
  - Weight increased [Recovered/Resolved]
  - Vaginal odour [Not Recovered/Not Resolved]
  - Menorrhagia [Not Recovered/Not Resolved]
  - Dysmenorrhoea [Not Recovered/Not Resolved]
  - Abdominal pain [Not Recovered/Not Resolved]
  - Metrorrhagia [Not Recovered/Not Resolved]
